FAERS Safety Report 6021579-2 (Version None)
Quarter: 2008Q4

REPORT INFORMATION
  Report Type: 
  Country: None (occurrence: None)
  Receive Date: 20081229
  Receipt Date: 20081218
  Transmission Date: 20090506
  Serious: Yes (Hospitalization, Other)
  Sender: FDA-Public Use
  Company Number: PHEH2008US11038

PATIENT
  Sex: Male
  Weight: 172.47 kg

DRUGS (5)
  1. TASIGNA [Suspect]
     Indication: CHRONIC MYELOID LEUKAEMIA
     Dosage: 400 MG, QD
     Dates: start: 20081104
  2. TASIGNA [Suspect]
     Indication: THROMBOCYTOPENIA
  3. LASIX [Concomitant]
  4. GLUCOPHAGE [Concomitant]
  5. POTASSIUM CHLORIDE [Concomitant]

REACTIONS (24)
  - ASTHENIA [None]
  - ATELECTASIS [None]
  - BLOOD CALCIUM DECREASED [None]
  - BLOOD GLUCOSE INCREASED [None]
  - DEHYDRATION [None]
  - DYSPNOEA [None]
  - EPISTAXIS [None]
  - EYE HAEMORRHAGE [None]
  - EYE IRRITATION [None]
  - EYE PAIN [None]
  - FATIGUE [None]
  - HAEMATOCRIT DECREASED [None]
  - HAEMOGLOBIN DECREASED [None]
  - HEADACHE [None]
  - MOUTH HAEMORRHAGE [None]
  - NAUSEA [None]
  - ORAL INFECTION [None]
  - PAIN [None]
  - PNEUMONIA [None]
  - PRODUCTIVE COUGH [None]
  - PROTHROMBIN TIME PROLONGED [None]
  - RHONCHI [None]
  - VOMITING [None]
  - WHITE BLOOD CELL COUNT INCREASED [None]
